FAERS Safety Report 14514899 (Version 4)
Quarter: 2018Q3

REPORT INFORMATION
  Report Type: Report from Study
  Country: IT (occurrence: IT)
  Receive Date: 20180209
  Receipt Date: 20180706
  Transmission Date: 20181010
  Serious: Yes (Hospitalization, Other)
  Sender: FDA-Public Use
  Company Number: IT-BRISTOL-MYERS SQUIBB COMPANY-BMS-2016-087150

PATIENT
  Age: 103 Year
  Sex: Male

DRUGS (1)
  1. WARFARIN SODIUM. [Suspect]
     Active Substance: WARFARIN SODIUM
     Indication: ANTICOAGULANT THERAPY
     Dosage: 5 MG, UNK
     Route: 048

REACTIONS (9)
  - Abdominal pain upper [Unknown]
  - Anaemia [Unknown]
  - Haematuria [Recovered/Resolved]
  - Strangury [Unknown]
  - Pelvic pain [Unknown]
  - Packed red blood cell transfusion [Unknown]
  - Pollakiuria [Unknown]
  - Abdominal pain [Unknown]
  - Pyrexia [Unknown]

NARRATIVE: CASE EVENT DATE: 20160901
